FAERS Safety Report 6216388-5 (Version None)
Quarter: 2009Q2

REPORT INFORMATION
  Report Type: 
  Country: None (occurrence: None)
  Receive Date: 20090605
  Receipt Date: 20090528
  Transmission Date: 20091009
  Serious: Yes (Hospitalization)
  Sender: FDA-Public Use
  Company Number: DE-BIOGENIDEC-2009BI015967

PATIENT
  Age: 48 Year
  Sex: Male
  Weight: 70 kg

DRUGS (6)
  1. TYSABRI [Suspect]
     Indication: MULTIPLE SCLEROSIS
     Route: 042
     Dates: start: 20070112, end: 20080701
  2. UDC 250 [Concomitant]
     Dates: start: 20000801
  3. COLO-PLEON [Concomitant]
     Dates: start: 19951201, end: 20090210
  4. ZOLPIDEM TARTRATE [Concomitant]
     Dates: start: 20081001, end: 20081215
  5. CYMBALTA [Concomitant]
     Dates: start: 20081015
  6. NOVAMINSULFON [Concomitant]
     Dates: start: 20081015

REACTIONS (1)
  - URINARY RETENTION [None]
